FAERS Safety Report 6005543-5 (Version None)
Quarter: 2008Q4

REPORT INFORMATION
  Report Type: 
  Country: None (occurrence: None)
  Receive Date: 20081215
  Receipt Date: 20061016
  Transmission Date: 20090506
  Serious: Yes (Hospitalization)
  Sender: FDA-Public Use
  Company Number: 1000003101

PATIENT
  Age: 81 Year
  Sex: Female

DRUGS (7)
  1. ESCITALOPRAM [Suspect]
     Indication: DEPRESSION
     Dosage: 10 MILLIGRAM (10 MG),ORAL; 3 WEEKS PRIOR TO HOSPITALIZATION
  2. HYDROCHLOROTHIAZIDE [Suspect]
  3. MIRTAZAPINE [Suspect]
  4. RAMIPRIL [Concomitant]
  5. DONEPEZIL HCL [Concomitant]
  6. ALENDRONIC ACID [Concomitant]
  7. . [Concomitant]

REACTIONS (6)
  - ASTHENIA [None]
  - CONFUSIONAL STATE [None]
  - DRUG INTERACTION [None]
  - FALL [None]
  - FANCONI SYNDROME [None]
  - INAPPROPRIATE ANTIDIURETIC HORMONE SECRETION [None]
